FAERS Safety Report 9167634 (Version 2)
Quarter: 2013Q3

REPORT INFORMATION
  Report Type: Spontaneous
  Country: CA (occurrence: None)
  Receive Date: 20130307
  Receipt Date: 20130731
  Transmission Date: 20140515
  Serious: Yes (Life-Threatening, Hospitalization, Other)
  Sender: FDA-Public Use
  Company Number: 2013000034

PATIENT
  Age: 67 Year
  Sex: Female
  Weight: 101 kg

DRUGS (3)
  1. ACEON [Suspect]
     Indication: PRODUCT USED FOR UNKNOWN INDICATION
     Dosage: 8 MG, QD, ORAL
     Route: 048
     Dates: start: 201001
  2. ACETYLSALICYLIC ACID (ACETYLSALICYLIC ACID) [Concomitant]
  3. NSAID^S [Concomitant]

REACTIONS (5)
  - Dysphagia [None]
  - Lymphadenopathy [None]
  - Oedema [None]
  - Swollen tongue [None]
  - Drug interaction [None]
